FAERS Safety Report 10227795 (Version 1)
Quarter: 2014Q2

REPORT INFORMATION
  Report Type: Spontaneous
  Country: US (occurrence: US)
  Receive Date: 20140610
  Receipt Date: 20140610
  Transmission Date: 20141212
  Serious: No
  Sender: FDA-Public Use
  Company Number: US-BAYER-2014-086127

PATIENT
  Age: 72 Year
  Sex: Female
  Weight: 67.57 kg

DRUGS (2)
  1. ALEVE GELCAPS [Suspect]
     Indication: NECK PAIN
     Dosage: 2 DF, BID
     Route: 048
     Dates: start: 201310
  2. ALEVE GELCAPS [Suspect]
     Indication: BACK PAIN

REACTIONS (2)
  - Extra dose administered [Not Recovered/Not Resolved]
  - Incorrect drug administration duration [None]
